FAERS Safety Report 9344388 (Version 1)
Quarter: 2013Q2

REPORT INFORMATION
  Report Type: Spontaneous
  Country: US (occurrence: None)
  Receive Date: 20130611
  Receipt Date: 20130611
  Transmission Date: 20140414
  Serious: Yes (Life-Threatening, Hospitalization, Disabling)
  Sender: FDA-Public Use
  Company Number: None

PATIENT
  Age: 81 Year
  Sex: Female
  Weight: 78.02 kg

DRUGS (11)
  1. CLINDAMYCIN [Suspect]
     Indication: ARTHRITIS INFECTIVE
     Dosage: 1  EVERY 6 HR FOR 10 DAYS  MOUTH
     Route: 048
     Dates: start: 20130421, end: 20130422
  2. GABAPENTIN [Concomitant]
  3. CARVEDILOL [Concomitant]
  4. CARB/LEVO [Concomitant]
  5. CYCLOBENZAPR [Concomitant]
  6. VITAMIN D [Concomitant]
  7. ICAPS [Concomitant]
  8. ASPIRIN [Concomitant]
  9. CENTRUM SILVER [Concomitant]
  10. CALTRATE [Concomitant]
  11. B12 VITAMINS [Concomitant]

REACTIONS (3)
  - Urticaria [None]
  - Dyspnoea [None]
  - Skin exfoliation [None]
